FAERS Safety Report 8129317-4 (Version None)
Quarter: 2012Q1

REPORT INFORMATION
  Report Type: 
  Country: None (occurrence: None)
  Receive Date: 20120210
  Receipt Date: 20120207
  Transmission Date: 20120608
  Serious: Yes (Other)
  Sender: FDA-Public Use
  Company Number: PHHO2012US001462

PATIENT
  Age: 41 Year
  Sex: Male

DRUGS (27)
  1. LORATADINE [Concomitant]
     Dosage: UNK
     Dates: start: 20110907
  2. MAGNESIUM SULPHATE PASTE [Concomitant]
     Dosage: UNK
     Dates: start: 20111228, end: 20111228
  3. METOCLOPRAMIDE [Concomitant]
     Dosage: UNK
     Dates: start: 20111116
  4. MIRALAX [Concomitant]
     Dosage: UNK
     Dates: start: 20111019
  5. RANITIDINE [Concomitant]
     Dosage: UNK
     Dates: start: 20111228, end: 20111228
  6. TAXOL [Suspect]
     Indication: NEOPLASM
     Dosage: UNK
     Dates: start: 20110824, end: 20120117
  7. DIPHENHYDRAMINE HCL [Concomitant]
     Dosage: UNK
     Dates: start: 20111228, end: 20111228
  8. DOCUSATE SODIUM [Concomitant]
     Dosage: UNK
     Dates: start: 20111019
  9. CARBOPLATIN [Suspect]
     Indication: NEOPLASM
     Dosage: UNK
     Dates: start: 20110824, end: 20120117
  10. ALBUTEROL [Concomitant]
     Dosage: UNK
     Dates: start: 20110811
  11. BECLOMETHASONE DIPROPIONATE [Concomitant]
     Dosage: UNK
     Dates: start: 20110811
  12. FENOFIBRATE [Concomitant]
     Dosage: UNK
     Dates: start: 20110811
  13. FLUTICASONE PROPIONATE [Concomitant]
     Dosage: UNK
     Dates: start: 20110811, end: 20110907
  14. MELOXICAM [Concomitant]
     Dosage: UNK
     Dates: start: 20110811, end: 20110907
  15. METAXALONE [Concomitant]
     Dosage: UNK
     Dates: start: 20110811
  16. OMEPRAZOLE [Concomitant]
     Dosage: UNK
     Dates: start: 20110921
  17. VICODIN [Concomitant]
     Dosage: UNK
     Dates: start: 20110824
  18. BKM120 [Suspect]
     Dosage: UNK
     Dates: start: 20120201
  19. DEXAMETHASONE [Concomitant]
     Dosage: UNK
     Dates: start: 20111228, end: 20111228
  20. OXYCODONE HCL [Concomitant]
     Dosage: UNK
     Dates: start: 20110914
  21. TOLNAFTATE [Concomitant]
     Dosage: UNK
     Dates: start: 20110510
  22. LOPERAMIDE HCL [Concomitant]
     Dosage: UNK
     Dates: start: 20111127
  23. BKM120 [Suspect]
     Indication: NEOPLASM
     Dosage: UNK
     Dates: start: 20110824, end: 20120117
  24. AZELASTINE HCL [Concomitant]
     Dosage: UNK
     Dates: start: 20110811
  25. MOMETASONE FUROATE [Concomitant]
     Dosage: UNK
     Dates: start: 20110811
  26. NYSTATIN [Concomitant]
     Dosage: UNK
     Dates: start: 20110914
  27. PALONOSETRON HYDROCHLORIDE [Concomitant]
     Dosage: UNK
     Dates: start: 20111228, end: 20111228

REACTIONS (2)
  - PERIPHERAL SENSORY NEUROPATHY [None]
  - ARTHRALGIA [None]
